FAERS Safety Report 9728333 (Version 6)
Quarter: 2014Q2

REPORT INFORMATION
  Report Type: Spontaneous
  Country: DE (occurrence: DE)
  Receive Date: 20131204
  Receipt Date: 20140624
  Transmission Date: 20141212
  Serious: Yes (Other)
  Sender: FDA-Public Use
  Company Number: DE-ROCHE-1310726

PATIENT
  Sex: Female

DRUGS (1)
  1. LUCENTIS [Suspect]
     Indication: AGE-RELATED MACULAR DEGENERATION
     Route: 050
     Dates: start: 2012

REACTIONS (8)
  - Cataract [Not Recovered/Not Resolved]
  - Influenza like illness [Unknown]
  - Conjunctival vascular disorder [Not Recovered/Not Resolved]
  - Hypersensitivity [Not Recovered/Not Resolved]
  - Visual acuity reduced [Unknown]
  - Vitreous disorder [Recovered/Resolved]
  - Dizziness [Unknown]
  - Inappropriate schedule of drug administration [Unknown]
